FAERS Safety Report 17414422 (Version 1)
Quarter: 2020Q1

REPORT INFORMATION
  Report Type: Spontaneous
  Country: FR (occurrence: FR)
  Receive Date: 20200213
  Receipt Date: 20200213
  Transmission Date: 20200409
  Serious: Yes (Hospitalization)
  Sender: FDA-Public Use
  Company Number: FR-CELGENEUS-FRA-20200202821

PATIENT
  Age: 78 Year
  Sex: Female

DRUGS (1)
  1. ABRAXANE [Suspect]
     Active Substance: PACLITAXEL
     Indication: ENDOMETRIAL ADENOCARCINOMA
     Route: 041
     Dates: start: 201906, end: 20190912

REACTIONS (2)
  - Neuropathy peripheral [Unknown]
  - Lung disorder [Unknown]

NARRATIVE: CASE EVENT DATE: 201909
